FAERS Safety Report 10902250 (Version 2)
Quarter: 2015Q2

REPORT INFORMATION
  Report Type: Spontaneous
  Country: JP (occurrence: JP)
  Receive Date: 20150310
  Receipt Date: 20150403
  Transmission Date: 20150821
  Serious: Yes (Hospitalization, Other)
  Sender: FDA-Public Use
  Company Number: JP-ELI_LILLY_AND_COMPANY-JP201503001067

PATIENT
  Age: 45 Year
  Sex: Female

DRUGS (2)
  1. TAXOTERE [Suspect]
     Active Substance: DOCETAXEL
     Indication: OVARIAN CANCER
     Dosage: 60 MG/M2, UNK
     Route: 065
     Dates: start: 20141222, end: 20150212
  2. GEMZAR [Suspect]
     Active Substance: GEMCITABINE HYDROCHLORIDE
     Indication: OVARIAN CANCER
     Dosage: 800 MG/M2, UNK
     Route: 042
     Dates: start: 20141222, end: 20150212

REACTIONS (6)
  - Dermatomyositis [Unknown]
  - Skin exfoliation [Recovering/Resolving]
  - Interstitial lung disease [Unknown]
  - Erythema of eyelid [Recovering/Resolving]
  - Pyrexia [Unknown]
  - Erythema [Recovering/Resolving]

NARRATIVE: CASE EVENT DATE: 20150216
